FAERS Safety Report 4933273-7 (Version None)
Quarter: 2006Q1

REPORT INFORMATION
  Report Type: 
  Country: None (occurrence: None)
  Receive Date: 20060306
  Receipt Date: 20060221
  Transmission Date: 20060701
  Serious: Yes (Hospitalization)
  Sender: FDA-Public Use
  Company Number: US-MERCK-0602USA05257

PATIENT
  Age: 56 Year
  Sex: Female
  Weight: 57 kg

DRUGS (21)
  1. VIOXX [Suspect]
     Indication: RHEUMATOID ARTHRITIS
     Route: 048
     Dates: start: 19990501, end: 20040701
  2. METHOTREXATE [Concomitant]
     Route: 065
     Dates: start: 19980501
  3. PREDNISONE [Concomitant]
     Route: 065
     Dates: start: 19980101
  4. DARVOCET-N 50 [Concomitant]
     Indication: PAIN
     Route: 065
     Dates: start: 19800101
  5. ASPIRIN [Concomitant]
     Route: 065
     Dates: start: 19710101, end: 20040101
  6. PRINIVIL [Concomitant]
     Route: 065
     Dates: start: 19950301, end: 20000101
  7. PREMPRO [Concomitant]
     Indication: HOT FLUSH
     Route: 065
     Dates: start: 19840101, end: 20000101
  8. PROZAC [Concomitant]
     Indication: DEPRESSION
     Route: 065
     Dates: start: 19890101
  9. LIBRIUM [Concomitant]
     Indication: GASTRIC DISORDER
     Route: 065
     Dates: start: 19930101
  10. CEPHALEXIN [Concomitant]
     Route: 065
  11. OXYCODONE [Concomitant]
     Route: 065
  12. HALCION [Concomitant]
     Indication: INSOMNIA
     Route: 065
  13. DELTASONE [Concomitant]
     Route: 065
  14. CLARITIN [Concomitant]
     Indication: ALLERGIC SINUSITIS
     Route: 065
  15. DIOVAN [Concomitant]
     Route: 065
  16. PRILOSEC [Concomitant]
     Route: 065
  17. [THERAPY UNSPECIFIED] [Concomitant]
     Route: 065
  18. AMOXIL [Concomitant]
     Route: 065
  19. GUIATUSS [Concomitant]
     Route: 065
  20. ARAVA [Concomitant]
     Route: 065
  21. QUININE [Concomitant]
     Route: 065

REACTIONS (10)
  - ARTHROPATHY [None]
  - BACK DISORDER [None]
  - BLOOD CHOLESTEROL INCREASED [None]
  - CARDIAC DISORDER [None]
  - GALLBLADDER DISORDER [None]
  - HEART RATE IRREGULAR [None]
  - MYOCARDIAL INFARCTION [None]
  - OEDEMA PERIPHERAL [None]
  - SPINAL DISORDER [None]
  - UPPER LIMB FRACTURE [None]
